FAERS Safety Report 9561845 (Version 2)
Quarter: 2013Q3

REPORT INFORMATION
  Report Type: Spontaneous
  Country: NO (occurrence: NO)
  Receive Date: 20130927
  Receipt Date: 20130927
  Transmission Date: 20140515
  Serious: Yes (Other)
  Sender: FDA-Public Use
  Company Number: NO-ASTELLAS-2013EU007437

PATIENT
  Sex: Male

DRUGS (4)
  1. BETMIGA [Suspect]
     Indication: HYPERTONIC BLADDER
     Dosage: 50 MG, UID/QD
     Route: 065
  2. VESICARE [Suspect]
     Dosage: UNK
     Route: 065
  3. TOVIAZ [Suspect]
     Dosage: 4 MG, UID/QD
     Route: 065
     Dates: start: 20130828
  4. DUODART [Suspect]
     Dosage: UNK
     Route: 065

REACTIONS (9)
  - Drug ineffective [Unknown]
  - Atrial fibrillation [Recovered/Resolved]
  - Palpitations [Recovered/Resolved]
  - Urinary incontinence [Unknown]
  - Gastrooesophageal reflux disease [Unknown]
  - Vomiting [Unknown]
  - Faeces hard [Unknown]
  - Dry mouth [Unknown]
  - Dry eye [Unknown]
